FAERS Safety Report 25198380 (Version 2)
Quarter: 2025Q2

REPORT INFORMATION
  Report Type: Spontaneous
  Country: US (occurrence: US)
  Receive Date: 20250415
  Receipt Date: 20250420
  Transmission Date: 20250716
  Serious: Yes (Life-Threatening, Hospitalization, Other)
  Sender: GLENMARK
  Company Number: US-GLENMARK PHARMACEUTICALS-2025GMK099352

PATIENT
  Age: 53 Year
  Sex: Male

DRUGS (4)
  1. METFORMIN HYDROCHLORIDE [Suspect]
     Active Substance: METFORMIN HYDROCHLORIDE
     Indication: Diabetes mellitus
     Route: 065
  2. DAPAGLIFLOZIN [Suspect]
     Active Substance: DAPAGLIFLOZIN
     Indication: Diabetes mellitus
     Route: 065
  3. SEMAGLUTIDE [Suspect]
     Active Substance: SEMAGLUTIDE
     Indication: Diabetes mellitus
     Route: 065
  4. SEMAGLUTIDE [Suspect]
     Active Substance: SEMAGLUTIDE
     Route: 065

REACTIONS (4)
  - Euglycaemic diabetic ketoacidosis [Recovered/Resolved]
  - Hyperkalaemia [Recovered/Resolved]
  - Blood creatinine increased [Recovered/Resolved]
  - Lactic acidosis [Recovered/Resolved]
